FAERS Safety Report 19329918 (Version 1)
Quarter: 2021Q2

REPORT INFORMATION
  Report Type: Spontaneous
  Country: RU (occurrence: RU)
  Receive Date: 20210528
  Receipt Date: 20210528
  Transmission Date: 20210717
  Serious: Yes (Hospitalization, Other)
  Sender: FDA-Public Use
  Company Number: RU-VIIV HEALTHCARE LIMITED-RU2021EME110954

PATIENT
  Age: 40 Year
  Sex: Female

DRUGS (7)
  1. RITONAVIR. [Suspect]
     Active Substance: RITONAVIR
     Indication: HIV INFECTION
     Dosage: 100 MG
     Dates: start: 20200921
  2. CEFAZOLIN [Concomitant]
     Active Substance: CEFAZOLIN
     Indication: BACTERIAL INFECTION
     Dosage: 2 G, 1D
     Dates: start: 202008
  3. ACICLOVIR [Suspect]
     Active Substance: ACYCLOVIR
     Indication: HERPES ZOSTER
     Dosage: 800 MG, 5 TIMES A DAY
     Dates: start: 202008
  4. DARUNAVIR [Suspect]
     Active Substance: DARUNAVIR
     Indication: HIV INFECTION
     Dosage: 800 MG
     Dates: start: 20200921
  5. LAMIVUDINE HIV [Suspect]
     Active Substance: LAMIVUDINE
     Indication: HIV INFECTION
     Dosage: 250 MG, BID
     Dates: start: 20200921
  6. TENOFOVIR DISOPROXIL FUMARATE. [Suspect]
     Active Substance: TENOFOVIR DISOPROXIL FUMARATE
     Indication: HIV INFECTION
     Dosage: 300 MG
     Dates: start: 20200921
  7. VALGANCICLOVIR. [Suspect]
     Active Substance: VALGANCICLOVIR
     Indication: CYTOMEGALOVIRUS CHORIORETINITIS
     Dosage: UNK

REACTIONS (33)
  - Malaise [Unknown]
  - Chills [Unknown]
  - Pain in extremity [Unknown]
  - Rash maculo-papular [Recovered/Resolved]
  - Disease progression [Unknown]
  - Rash pruritic [Recovered/Resolved]
  - Lymphadenopathy [Unknown]
  - Diarrhoea [Unknown]
  - Eosinophilia [Unknown]
  - Pain [Unknown]
  - Pyrexia [Recovered/Resolved]
  - Scleral hyperaemia [Unknown]
  - Rales [Unknown]
  - Blister [Unknown]
  - Proteinuria [Unknown]
  - Eye pain [Unknown]
  - Skin disorder [Unknown]
  - Aphthous ulcer [Unknown]
  - Respiration abnormal [Unknown]
  - Skin injury [Recovering/Resolving]
  - Toxic epidermal necrolysis [Unknown]
  - Mucosal hyperaemia [Unknown]
  - Pleural effusion [Unknown]
  - Skin hyperpigmentation [Unknown]
  - Hyperaesthesia [Unknown]
  - Lacrimation increased [Unknown]
  - Erythema [Unknown]
  - Oedema mucosal [Unknown]
  - Pruritus [Unknown]
  - Lung opacity [Unknown]
  - Thrombocytopenia [Unknown]
  - Asthenia [Unknown]
  - Dry mouth [Unknown]

NARRATIVE: CASE EVENT DATE: 20200921
